FAERS Safety Report 9917467 (Version 3)
Quarter: 2014Q2

REPORT INFORMATION
  Report Type: Spontaneous
  Country: US (occurrence: US)
  Receive Date: 20140221
  Receipt Date: 20140630
  Transmission Date: 20141212
  Serious: No
  Sender: FDA-Public Use
  Company Number: US-PFIZER INC-2014050292

PATIENT
  Age: 69 Year
  Sex: Female
  Weight: 90.7 kg

DRUGS (8)
  1. ZOLOFT [Suspect]
     Indication: OBSESSIVE-COMPULSIVE DISORDER
     Dosage: 100 MG, 2X/DAY
     Route: 048
     Dates: end: 2013
  2. ZOLOFT [Suspect]
     Indication: SOCIAL PHOBIA
  3. ZOLOFT [Suspect]
     Indication: ANXIETY
  4. ZOLOFT [Suspect]
     Indication: DEPRESSION
  5. OMEPRAZOLE [Concomitant]
     Indication: GASTROOESOPHAGEAL REFLUX DISEASE
     Dosage: UNK
  6. CADUET [Concomitant]
     Indication: HYPERTENSION
     Dosage: UNK
  7. QUINAPRIL [Concomitant]
     Indication: HYPERTENSION
     Dosage: UNK
  8. SINGULAIR [Concomitant]
     Indication: VASOMOTOR RHINITIS
     Dosage: UNK

REACTIONS (5)
  - Gastric disorder [Recovering/Resolving]
  - Metabolic disorder [Unknown]
  - Weight decreased [Unknown]
  - Metabolic disorder [Unknown]
  - Gastric hypermotility [Unknown]
